FAERS Safety Report 15515199 (Version 2)
Quarter: 2018Q4

REPORT INFORMATION
  Report Type: Spontaneous
  Country: FR (occurrence: FR)
  Receive Date: 20181017
  Receipt Date: 20181212
  Transmission Date: 20190205
  Serious: Yes (Other)
  Sender: FDA-Public Use
  Company Number: FR-TEVA-2018-FR-965048

PATIENT
  Age: 71 Year
  Sex: Female
  Weight: 64 kg

DRUGS (5)
  1. GEMCITABINE [Suspect]
     Active Substance: GEMCITABINE\GEMCITABINE HYDROCHLORIDE
     Indication: BREAST CANCER
     Route: 042
     Dates: start: 20180504, end: 20180504
  2. TRANDATE [Concomitant]
     Active Substance: LABETALOL HYDROCHLORIDE
     Indication: HYPERTENSION
     Dosage: 1 DOSAGE FORMS DAILY;
     Route: 048
  3. PARIET 20 MG, COMPRIM? GASTRO-R?SISTANT [Concomitant]
     Active Substance: RABEPRAZOLE SODIUM
     Indication: PRODUCT USED FOR UNKNOWN INDICATION
     Dosage: 1 DOSAGE FORMS DAILY;
     Route: 048
  4. COAPROVEL 150 MG/12,5 MG, COMPRIM? [Concomitant]
     Active Substance: HYDROCHLOROTHIAZIDE\IRBESARTAN
     Indication: HYPERTENSION
     Dosage: 1 DOSAGE FORMS DAILY;
     Route: 048
  5. ZOCOR [Concomitant]
     Active Substance: SIMVASTATIN
     Indication: HYPERCHOLESTEROLAEMIA
     Dosage: 1 DOSAGE FORMS DAILY;
     Route: 048

REACTIONS (1)
  - Hepatitis cholestatic [Recovered/Resolved]

NARRATIVE: CASE EVENT DATE: 20180516
